FAERS Safety Report 8216365-9 (Version None)
Quarter: 2012Q1

REPORT INFORMATION
  Report Type: 
  Country: None (occurrence: None)
  Receive Date: 20120316
  Receipt Date: 20120312
  Transmission Date: 20120608
  Serious: Yes (Other)
  Sender: FDA-Public Use
  Company Number: PHHY2012JP013234

PATIENT
  Age: 63 Year
  Sex: Male

DRUGS (4)
  1. PREDNISOLONE [Concomitant]
     Dosage: 60 MG, UNK
     Route: 048
  2. CORTICOSTEROIDS [Concomitant]
     Dosage: 60 MG/DAILY
     Route: 048
  3. NEORAL [Suspect]
     Indication: HAEMOLYTIC ANAEMIA
     Dosage: 300 MG/DAILY
     Route: 048
     Dates: end: 20120201
  4. COTRIM [Concomitant]
     Route: 048

REACTIONS (4)
  - HEPATIC ENZYME INCREASED [None]
  - BLOOD CREATININE INCREASED [None]
  - CHEST DISCOMFORT [None]
  - JAUNDICE [None]
